FAERS Safety Report 20589177 (Version 2)
Quarter: 2022Q3

REPORT INFORMATION
  Report Type: Spontaneous
  Country: US (occurrence: US)
  Receive Date: 20220314
  Receipt Date: 20220825
  Transmission Date: 20221026
  Serious: No
  Sender: FDA-Public Use
  Company Number: US-PFIZER INC-202200124056

PATIENT
  Age: 48 Year
  Sex: Female

DRUGS (1)
  1. XELJANZ XR [Suspect]
     Active Substance: TOFACITINIB CITRATE
     Dosage: 11 MG
     Dates: start: 20211210, end: 20220803

REACTIONS (7)
  - Drug ineffective [Unknown]
  - COVID-19 [Unknown]
  - Nausea [Unknown]
  - Dizziness [Unknown]
  - Influenza [Unknown]
  - Inflammation [Unknown]
  - Arthralgia [Unknown]
